FAERS Safety Report 14556411 (Version 4)
Quarter: 2019Q2

REPORT INFORMATION
  Report Type: Report from Study
  Country: SE (occurrence: SE)
  Receive Date: 20180221
  Receipt Date: 20190515
  Transmission Date: 20190711
  Serious: Yes (Hospitalization)
  Sender: FDA-Public Use
  Company Number: SE-ROCHE-2070107

PATIENT
  Age: 65 Year
  Sex: Male
  Weight: 75.9 kg

DRUGS (6)
  1. EUSAPRIM [SULFAMETHOXAZOLE;TRIMETHOPRIM] [Concomitant]
     Active Substance: SULFAMETHOXAZOLE\TRIMETHOPRIM
     Dosage: 160/800 MG
     Route: 048
     Dates: start: 20171106
  2. VENETOCLAX. [Suspect]
     Active Substance: VENETOCLAX
     Indication: CHRONIC LYMPHOCYTIC LEUKAEMIA
     Dosage: MOST RECENT DOSE (400 MG) PRIOR TO SAE: 04/FEB/2018?DOSE AS PER PROTOCOL: CYCLE 1: 20 MG (2 TABLET A
     Route: 048
     Dates: start: 20171024
  3. ALVEDON [Concomitant]
     Active Substance: ACETAMINOPHEN
     Route: 048
     Dates: start: 20180131
  4. ACYCLOVIR [ACICLOVIR] [Concomitant]
     Active Substance: ACYCLOVIR
     Route: 048
     Dates: start: 20171005
  5. OSELTAMIVIR [Concomitant]
     Active Substance: OSELTAMIVIR
  6. OBINUTUZUMAB. [Suspect]
     Active Substance: OBINUTUZUMAB
     Indication: CHRONIC LYMPHOCYTIC LEUKAEMIA
     Dosage: MOST RECENT DOSE (1000 MG) PRIOR TO SAE: 09/JAN/2018?DOSE AS PER PROTOCOL: 100 MG, DAY1; 900 MG, DAY
     Route: 042
     Dates: start: 20171003

REACTIONS (1)
  - Pleural effusion [Recovered/Resolved]

NARRATIVE: CASE EVENT DATE: 20180204
